FAERS Safety Report 8816936 (Version 1)
Quarter: 2012Q4

REPORT INFORMATION
  Report Type: Spontaneous
  Country: US (occurrence: None)
  Receive Date: 20121002
  Receipt Date: 20121002
  Transmission Date: 20130627
  Serious: Yes (Life-Threatening, Other)
  Sender: FDA-Public Use
  Company Number: None

PATIENT
  Age: 36 Year
  Sex: Female
  Weight: 59.88 kg

DRUGS (1)
  1. ZYCLARA [Suspect]
     Indication: ACTINIC KERATOSIS
     Dosage: 1 pump Once per night top
10 applications
     Route: 061
     Dates: start: 20120915, end: 20120924

REACTIONS (2)
  - Staphylococcal skin infection [None]
  - Multiple-drug resistance [None]
